FAERS Safety Report 25726553 (Version 2)
Quarter: 2025Q3

REPORT INFORMATION
  Report Type: Report from Study
  Country: EU (occurrence: EU)
  Receive Date: 20250826
  Receipt Date: 20250917
  Transmission Date: 20251020
  Serious: Yes (Other)
  Sender: TORRENT PHARMA INC.
  Company Number: None

PATIENT
  Age: 50 Year
  Sex: Female

DRUGS (1)
  1. PREGABALIN [Suspect]
     Active Substance: PREGABALIN
     Indication: Withdrawal syndrome
     Dosage: 900 MILLIGRAM DAILY
     Route: 065

REACTIONS (2)
  - Drug dependence [Unknown]
  - Overdose [Unknown]
